FAERS Safety Report 13240489 (Version 1)
Quarter: 2017Q1

REPORT INFORMATION
  Report Type: Spontaneous
  Country: US (occurrence: US)
  Receive Date: 20170216
  Receipt Date: 20170216
  Transmission Date: 20170428
  Serious: No
  Sender: FDA-Public Use
  Company Number: US-RELYPSA-RLY2016003685

PATIENT
  Sex: Female

DRUGS (18)
  1. NORTRIPTYLINE [Concomitant]
     Active Substance: NORTRIPTYLINE
  2. PROPRANOLOL [Concomitant]
     Active Substance: PROPRANOLOL HYDROCHLORIDE
  3. PANTOPRAZOLE [Concomitant]
     Active Substance: PANTOPRAZOLE SODIUM
  4. GABAPENTIN. [Concomitant]
     Active Substance: GABAPENTIN
  5. FENOFIBRATE. [Concomitant]
     Active Substance: FENOFIBRATE
  6. ASPIRIN. [Concomitant]
     Active Substance: ASPIRIN
  7. DIAZEPAM. [Concomitant]
     Active Substance: DIAZEPAM
  8. TIZANIDINE. [Concomitant]
     Active Substance: TIZANIDINE
  9. VITAMIN B12 [Concomitant]
     Active Substance: CYANOCOBALAMIN
  10. VELTASSA [Suspect]
     Active Substance: PATIROMER
     Indication: HYPERKALAEMIA
     Dosage: 8.4 G, QD
     Route: 048
     Dates: start: 20160824
  11. ALLEGRA [Concomitant]
     Active Substance: FEXOFENADINE HYDROCHLORIDE
  12. VITAMIN D3 [Concomitant]
     Active Substance: CHOLECALCIFEROL
  13. KIONEX [Concomitant]
     Active Substance: SODIUM POLYSTYRENE SULFONATE
  14. AMLODIPINE [Concomitant]
     Active Substance: AMLODIPINE BESYLATE
  15. ONDANSETRON [Concomitant]
     Active Substance: ONDANSETRON
  16. NITROSTAT [Concomitant]
     Active Substance: NITROGLYCERIN
  17. MONTELUKAST [Concomitant]
     Active Substance: MONTELUKAST SODIUM
  18. OXYCODONE [Concomitant]
     Active Substance: OXYCODONE

REACTIONS (2)
  - Headache [Recovered/Resolved]
  - Therapeutic response unexpected [Unknown]

NARRATIVE: CASE EVENT DATE: 2016
